FAERS Safety Report 17493222 (Version 1)
Quarter: 2020Q1

REPORT INFORMATION
  Report Type: Spontaneous
  Country: US (occurrence: US)
  Receive Date: 20200304
  Receipt Date: 20200304
  Transmission Date: 20200409
  Serious: Yes (Hospitalization, Other)
  Sender: FDA-Public Use
  Company Number: US-HIKMA PHARMACEUTICALS USA INC.-US-H14001-20-01015

PATIENT
  Age: 54 Year
  Sex: Male

DRUGS (2)
  1. MORPHINE [Suspect]
     Active Substance: MORPHINE
     Indication: ABDOMINAL PAIN
     Dosage: LOW DOSES ()
     Route: 042
  2. MORPHINE [Suspect]
     Active Substance: MORPHINE
     Indication: ABDOMINAL PAIN
     Dosage: FREQUENCY AND DOSE OF MORPHINE WERE INCREASED ()
     Route: 042

REACTIONS (2)
  - Abdominal pain [Recovered/Resolved]
  - Sphincter of Oddi dysfunction [Recovered/Resolved]
